FAERS Safety Report 19242084 (Version 1)
Quarter: 2021Q2

REPORT INFORMATION
  Report Type: Spontaneous
  Country: US (occurrence: US)
  Receive Date: 20210510
  Receipt Date: 20210510
  Transmission Date: 20210717
  Serious: No
  Sender: FDA-Public Use
  Company Number: US-NOVOPROD-742166

PATIENT
  Age: 10 Year
  Sex: Female
  Weight: 23 kg

DRUGS (3)
  1. NORDITROPIN [Suspect]
     Active Substance: SOMATROPIN
     Dosage: 0.25MG
     Route: 058
     Dates: start: 20200707, end: 20200713
  2. NORDITROPIN [Suspect]
     Active Substance: SOMATROPIN
     Dosage: 1/4TH THE NORMAL DAILY DOSE
     Route: 058
  3. NORDITROPIN [Suspect]
     Active Substance: SOMATROPIN
     Indication: GROWTH HORMONE DEFICIENCY
     Dosage: 1 MG, QD
     Route: 058
     Dates: start: 202006

REACTIONS (2)
  - Flushing [Recovered/Resolved]
  - Paraesthesia [Unknown]

NARRATIVE: CASE EVENT DATE: 2020
